FAERS Safety Report 11801438 (Version 2)
Quarter: 2016Q1

REPORT INFORMATION
  Report Type: Spontaneous
  Country: US (occurrence: US)
  Receive Date: 20151204
  Receipt Date: 20160114
  Transmission Date: 20160525
  Serious: Yes (Other)
  Sender: FDA-Public Use
  Company Number: US-TEVA-613716ACC

PATIENT
  Age: 28 Year
  Sex: Female
  Weight: 59.47 kg

DRUGS (1)
  1. PARAGARD T 380A [Suspect]
     Active Substance: COPPER
     Indication: CONTRACEPTION
     Route: 015
     Dates: start: 20151030

REACTIONS (3)
  - Pain [Recovered/Resolved]
  - Metrorrhagia [Unknown]
  - Uterine perforation [Unknown]

NARRATIVE: CASE EVENT DATE: 20151030
